FAERS Safety Report 7932362-2 (Version None)
Quarter: 2011Q4

REPORT INFORMATION
  Report Type: 
  Country: None (occurrence: None)
  Receive Date: 20111121
  Receipt Date: 20111111
  Transmission Date: 20120403
  Serious: Yes (Hospitalization)
  Sender: FDA-Public Use
  Company Number: US-BRISTOL-MYERS SQUIBB COMPANY-16217135

PATIENT
  Age: 59 Year
  Sex: Male

DRUGS (8)
  1. CARBOPLATIN [Suspect]
     Indication: HEAD AND NECK CANCER
     Dosage: 1 DF: 5 DF LAST DOSE:17OCT11
     Route: 042
     Dates: start: 20111017
  2. VITAMIN B-12 [Concomitant]
     Dates: start: 20110927
  3. FOLIC ACID [Concomitant]
     Dates: start: 20110927
  4. MORPHINE [Concomitant]
     Dates: start: 20110906
  5. JEVITY [Concomitant]
     Dates: start: 20100101
  6. NYSTATIN [Concomitant]
     Dates: start: 20100101
  7. CETUXIMAB [Suspect]
     Indication: HEAD AND NECK CANCER
     Dosage: 17OCT11 400MG/M2 LAST DOSE:250MG/M2 24OCT11 HELD ON 31OCT11
     Route: 042
     Dates: start: 20111017
  8. PEMETREXED DISODIUM [Suspect]
     Indication: HEAD AND NECK CANCER
     Dosage: LAST DOSE:17OCT11
     Route: 042
     Dates: start: 20111017

REACTIONS (1)
  - HAEMOPTYSIS [None]
